FAERS Safety Report 22048323 (Version 1)
Quarter: 2023Q1

REPORT INFORMATION
  Report Type: Spontaneous
  Country: RU (occurrence: RU)
  Receive Date: 20230301
  Receipt Date: 20230301
  Transmission Date: 20230417
  Serious: Yes (Other)
  Sender: FDA-Public Use
  Company Number: RU-MACLEODS PHARMACEUTICALS US LTD-MAC2023039927

PATIENT

DRUGS (1)
  1. LEVOTHYROXINE [Suspect]
     Active Substance: LEVOTHYROXINE
     Indication: Hypothyroidism
     Dosage: 62.5 MICROGRAM, QD (STRENGTH:  500 MCG, IN THE MORNING ON AN EMPTY STOMACH, 30 MINUTES BEFORE EATING
     Route: 065
     Dates: start: 201801, end: 201803

REACTIONS (1)
  - Hyperthyroidism [Recovered/Resolved]

NARRATIVE: CASE EVENT DATE: 20180101
